FAERS Safety Report 15935090 (Version 1)
Quarter: 2019Q1

REPORT INFORMATION
  Report Type: Report from Study
  Country: US (occurrence: US)
  Receive Date: 20190207
  Receipt Date: 20190207
  Transmission Date: 20190417
  Serious: Yes (Hospitalization)
  Sender: FDA-Public Use
  Company Number: US-MALLINCKRODT-T201804093

PATIENT
  Sex: Female
  Weight: 62 kg

DRUGS (2)
  1. REPOSITORY CORTICOTROPIN INJECTION [Suspect]
     Active Substance: CORTICOTROPIN
     Indication: STRESS FRACTURE
     Dosage: 80 UNITS/1 ML, FIVE TIMES WEEKLY AS DIRECTED
     Route: 058
     Dates: start: 201812
  2. REPOSITORY CORTICOTROPIN INJECTION [Suspect]
     Active Substance: CORTICOTROPIN
     Indication: RHEUMATOID ARTHRITIS
     Dosage: 80 UNITS/1 ML, (MONDAY, WEDNESDAY, FRIDAY)
     Route: 058
     Dates: start: 20150318

REACTIONS (8)
  - Joint dislocation [Unknown]
  - Bronchitis [Recovering/Resolving]
  - Pneumonia aspiration [Unknown]
  - Pneumonia [Recovering/Resolving]
  - Dislocation of vertebra [Unknown]
  - Pain in jaw [Not Recovered/Not Resolved]
  - Swelling [Not Recovered/Not Resolved]
  - Memory impairment [Not Recovered/Not Resolved]
